FAERS Safety Report 8031808-1 (Version None)
Quarter: 2012Q1

REPORT INFORMATION
  Report Type: 
  Country: None (occurrence: None)
  Receive Date: 20120109
  Receipt Date: 20120105
  Transmission Date: 20120608
  Serious: Yes (Other)
  Sender: FDA-Public Use
  Company Number: DE-ROCHE-1022629

PATIENT
  Age: 83 Year
  Sex: Female
  Weight: 50 kg

DRUGS (1)
  1. BONIVA [Suspect]
     Indication: OSTEOPOROSIS
     Route: 042
     Dates: start: 20100824

REACTIONS (2)
  - FALL [None]
  - SPINAL FRACTURE [None]
